FAERS Safety Report 7928210-7 (Version None)
Quarter: 2011Q4

REPORT INFORMATION
  Report Type: 
  Country: None (occurrence: None)
  Receive Date: 20111118
  Receipt Date: 20111116
  Transmission Date: 20120403
  Serious: Yes (Hospitalization, Other)
  Sender: FDA-Public Use
  Company Number: US-JNJFOC-20111103486

PATIENT
  Age: 59 Year
  Sex: Female

DRUGS (20)
  1. DEXAMETHASONE [Suspect]
     Route: 065
  2. BORTEZOMIB [Suspect]
     Dosage: 1.3 MG/MM3 ON DAYS 1,4,8 AND 11 EVERY 3 WEEKS OF DOXORUBICIN
     Route: 065
  3. DOXORUBICIN HCL [Suspect]
     Route: 042
  4. DOXORUBICIN HCL [Suspect]
     Route: 042
  5. DOXORUBICIN HCL [Suspect]
     Indication: MULTIPLE MYELOMA
     Dosage: ONCE EVERY 4 WEEKS
     Route: 042
     Dates: start: 20000101
  6. CARMUSTINE [Suspect]
     Route: 065
  7. CARMUSTINE [Suspect]
     Route: 065
  8. DEXAMETHASONE [Suspect]
     Route: 065
  9. DEXAMETHASONE [Suspect]
     Route: 065
  10. PAMIDRONATE DISODIUM [Suspect]
     Indication: MULTIPLE MYELOMA
     Route: 042
  11. PAMIDRONATE DISODIUM [Suspect]
     Route: 042
  12. THALIDOMIDE [Suspect]
     Indication: MULTIPLE MYELOMA
     Route: 065
  13. PAMIDRONATE DISODIUM [Suspect]
     Route: 042
  14. DOXORUBICIN HCL [Suspect]
     Route: 042
  15. DOXORUBICIN HCL [Suspect]
     Route: 042
  16. CARMUSTINE [Suspect]
     Indication: MULTIPLE MYELOMA
     Route: 065
  17. CARMUSTINE [Suspect]
     Route: 065
  18. DEXAMETHASONE [Suspect]
     Indication: MULTIPLE MYELOMA
     Route: 065
  19. PAMIDRONATE DISODIUM [Suspect]
     Route: 042
  20. BORTEZOMIB [Suspect]
     Indication: MULTIPLE MYELOMA
     Dosage: ON DAYS 1,4, 8 AND EVERY 21 DAYS
     Route: 065

REACTIONS (3)
  - BLOOD IMMUNOGLOBULIN A INCREASED [None]
  - CARDIAC FAILURE CONGESTIVE [None]
  - FEBRILE NEUTROPENIA [None]
